FAERS Safety Report 13892038 (Version 1)
Quarter: 2017Q3

REPORT INFORMATION
  Report Type: Spontaneous
  Country: NL (occurrence: NL)
  Receive Date: 20170822
  Receipt Date: 20170822
  Transmission Date: 20171127
  Serious: Yes (Life-Threatening, Hospitalization, Other)
  Sender: FDA-Public Use
  Company Number: NL-009507513-1705NLD010779

PATIENT
  Age: 71 Year
  Sex: Male

DRUGS (1)
  1. BCG LIVE [Suspect]
     Active Substance: BACILLUS CALMETTE-GUERIN SUBSTRAIN TICE LIVE ANTIGEN
     Indication: BLADDER CANCER
     Dosage: UNK
     Route: 043

REACTIONS (3)
  - Iliac artery rupture [Recovered/Resolved]
  - Pain [Unknown]
  - Disseminated Bacillus Calmette-Guerin infection [Recovered/Resolved]

NARRATIVE: CASE EVENT DATE: 2014
